FAERS Safety Report 13869339 (Version 3)
Quarter: 2017Q4

REPORT INFORMATION
  Report Type: Spontaneous
  Country: JP (occurrence: JP)
  Receive Date: 20170815
  Receipt Date: 20171030
  Transmission Date: 20180320
  Serious: Yes (Other)
  Sender: FDA-Public Use
  Company Number: JP-PFIZER INC-2017351277

PATIENT
  Age: 78 Year
  Sex: Female

DRUGS (5)
  1. VITANEURIN /00056102/ [Concomitant]
     Indication: PAIN IN EXTREMITY
     Dosage: 50 MG, 2X/DAY
     Dates: start: 20170201, end: 20170208
  2. LIMAPROST ALFADEX [Suspect]
     Active Substance: LIMAPROST
     Dosage: 5 UG, 3X/DAY
     Dates: start: 20170228, end: 20170301
  3. VITANEURIN /00056102/ [Concomitant]
     Dosage: 50 MG, 2X/DAY
     Dates: start: 20170228, end: 20170301
  4. LYRICA [Suspect]
     Active Substance: PREGABALIN
     Indication: PAIN IN EXTREMITY
     Dosage: 25 MG, 2X/DAY
     Route: 048
     Dates: start: 20170201, end: 20170208
  5. LYRICA [Suspect]
     Active Substance: PREGABALIN
     Dosage: 25 MG, 2X/DAY
     Dates: start: 20170228, end: 20170301

REACTIONS (1)
  - Neurogenic bladder [Recovered/Resolved]

NARRATIVE: CASE EVENT DATE: 20170301
